FAERS Safety Report 22058861 (Version 1)
Quarter: 2023Q1

REPORT INFORMATION
  Report Type: Report from Study
  Country: AU (occurrence: AU)
  Receive Date: 20230303
  Receipt Date: 20230303
  Transmission Date: 20230417
  Serious: Yes (Hospitalization, Other)
  Sender: FDA-Public Use
  Company Number: AU-GRUNENTHAL-2023-101220

PATIENT

DRUGS (28)
  1. NUCYNTA ER [Suspect]
     Active Substance: TAPENTADOL HYDROCHLORIDE
     Indication: Back pain
     Dosage: 200 MILLIGRAM, 1/DAY
     Route: 065
     Dates: start: 2010, end: 202107
  2. NUCYNTA ER [Suspect]
     Active Substance: TAPENTADOL HYDROCHLORIDE
     Indication: Ankle fracture
     Dosage: 150 MILLIGRAM, 2/DAY
     Route: 065
     Dates: start: 20210726
  3. PREGABALIN [Suspect]
     Active Substance: PREGABALIN
     Indication: Back pain
     Dosage: 75 MICROGRAM, 2/DAY
     Route: 048
     Dates: start: 2010
  4. PREGABALIN [Suspect]
     Active Substance: PREGABALIN
     Dosage: 75 MICROGRAM, 2/DAY
     Dates: start: 2010
  5. BISOPROLOL FUMARATE [Suspect]
     Active Substance: BISOPROLOL FUMARATE
     Indication: Atrial fibrillation
     Dosage: 2.5 MILLIGRAM, 1/DAY
     Dates: start: 20201014, end: 20210721
  6. BISOPROLOL FUMARATE [Suspect]
     Active Substance: BISOPROLOL FUMARATE
     Indication: Cardiac failure
     Dosage: 7.5 MILLIGRAM, 1/DAY
     Dates: start: 20210722
  7. METHADONE HYDROCHLORIDE [Suspect]
     Active Substance: METHADONE HYDROCHLORIDE
     Indication: Product used for unknown indication
     Dosage: 2.5 MILLIGRAM, 1/DAY
     Route: 065
  8. MIDODRINE HYDROCHLORIDE [Suspect]
     Active Substance: MIDODRINE HYDROCHLORIDE
     Indication: Cardiac failure
     Dosage: 5 MILLIGRAM, 3/DAY
     Route: 048
     Dates: start: 202102
  9. MIDODRINE HYDROCHLORIDE [Suspect]
     Active Substance: MIDODRINE HYDROCHLORIDE
     Dosage: 5 MILLIGRAM, 3/DAY
     Dates: start: 202102
  10. MINERALS\VITAMINS [Concomitant]
     Active Substance: MINERALS\VITAMINS
     Indication: Product used for unknown indication
     Dosage: 1 DOSAGE FORM, 1/DAY
     Route: 065
  11. MINERALS\VITAMINS [Concomitant]
     Active Substance: MINERALS\VITAMINS
     Dosage: 1 DOSAGE FORM, 1/DAY
  12. MAGNESIUM ASPARTATE DIHYDRATE [Concomitant]
     Active Substance: MAGNESIUM ASPARTATE DIHYDRATE
     Indication: Product used for unknown indication
     Dosage: 500 MILLIGRAM, 1/DAY
     Route: 065
  13. MAGNESIUM ASPARTATE DIHYDRATE [Concomitant]
     Active Substance: MAGNESIUM ASPARTATE DIHYDRATE
     Dosage: 500 MILLIGRAM, 1/DAY
  14. MOVICOL [Concomitant]
     Active Substance: POLYETHYLENE GLYCOL 3350\POTASSIUM CHLORIDE\SODIUM BICARBONATE\SODIUM CHLORIDE
     Indication: Prophylaxis
     Dosage: 1 DOSAGE FORM, 2/DAY
     Route: 065
  15. MOVICOL [Concomitant]
     Active Substance: POLYETHYLENE GLYCOL 3350\POTASSIUM CHLORIDE\SODIUM BICARBONATE\SODIUM CHLORIDE
     Dosage: 1 DOSAGE FORM, 2/DAY
  16. PANTOPRAZOLE [Concomitant]
     Active Substance: PANTOPRAZOLE
     Indication: Prophylaxis
     Dosage: 20 MILLIGRAM, 1/DAY
     Route: 065
  17. PANTOPRAZOLE [Concomitant]
     Active Substance: PANTOPRAZOLE
     Dosage: 20 MILLIGRAM, 1/DAY
  18. ACETAMINOPHEN [Concomitant]
     Active Substance: ACETAMINOPHEN
     Indication: Product used for unknown indication
     Dosage: 1330 MILLIGRAM, 3/DAY
     Route: 065
  19. ACETAMINOPHEN [Concomitant]
     Active Substance: ACETAMINOPHEN
     Dosage: 1330 MILLIGRAM, 3/DAY
  20. POTASSIUM CHLORIDE [Concomitant]
     Active Substance: POTASSIUM CHLORIDE
     Indication: Product used for unknown indication
     Dosage: 1200 MILLIGRAM, 2/DAY
     Route: 065
  21. POTASSIUM CHLORIDE [Concomitant]
     Active Substance: POTASSIUM CHLORIDE
     Dosage: 1200 MILLIGRAM, 2/DAY
  22. UBIDECARENONE [Concomitant]
     Active Substance: UBIDECARENONE
     Indication: Product used for unknown indication
     Dosage: 150 MILLIGRAM, 1/DAY
     Route: 065
  23. UBIDECARENONE [Concomitant]
     Active Substance: UBIDECARENONE
     Dosage: 150 MILLIGRAM, 1/DAY
  24. ACETAMINOPHEN\ASCORBIC ACID [Concomitant]
     Active Substance: ACETAMINOPHEN\ASCORBIC ACID
     Indication: Product used for unknown indication
     Dosage: 100 MILLIGRAM, 1/DAY
     Dates: start: 20210718
  25. CHOLECALCIFEROL [Concomitant]
     Active Substance: CHOLECALCIFEROL
     Indication: Osteoporosis
     Dosage: 25 MICROGRAM, 1/DAY
     Route: 065
  26. CHOLECALCIFEROL [Concomitant]
     Active Substance: CHOLECALCIFEROL
     Dosage: 25 MICROGRAM, 1/DAY
  27. DENOSUMAB [Concomitant]
     Active Substance: DENOSUMAB
     Indication: Product used for unknown indication
     Dosage: UNK UNK, Q6MONTHS
     Route: 065
  28. DENOSUMAB [Concomitant]
     Active Substance: DENOSUMAB
     Dosage: UNK UNK, 1 /6 MONTHS

REACTIONS (17)
  - Ankle fracture [Recovered/Resolved]
  - Fall [Unknown]
  - Cardiac amyloidosis [Unknown]
  - Atrial fibrillation [Recovered/Resolved]
  - Acute myocardial infarction [Not Recovered/Not Resolved]
  - Osteoporosis [Not Recovered/Not Resolved]
  - Chronic obstructive pulmonary disease [Not Recovered/Not Resolved]
  - Troponin I increased [Recovered/Resolved]
  - Cardiac failure congestive [Unknown]
  - Hypothyroidism [Unknown]
  - Cholecystectomy [Unknown]
  - Thyroidectomy [Unknown]
  - Iron deficiency [Unknown]
  - Blood creatinine increased [Unknown]
  - Dizziness [Unknown]
  - Orthostatic hypotension [Unknown]
  - Off label use [Unknown]

NARRATIVE: CASE EVENT DATE: 20100101
